FAERS Safety Report 20786427 (Version 1)
Quarter: 2022Q2

REPORT INFORMATION
  Report Type: Spontaneous
  Country: US (occurrence: None)
  Receive Date: 20220504
  Receipt Date: 20220504
  Transmission Date: 20220721
  Serious: No
  Sender: FDA-Public Use
  Company Number: US-ROCHE-2911744

PATIENT
  Age: 38 Year
  Weight: 74.910 kg

DRUGS (7)
  1. OCREVUS [Suspect]
     Active Substance: OCRELIZUMAB
     Indication: Multiple sclerosis
     Dosage: NEXT DOSE OF OCRELIZUMAB (300 MG) ON 10/JUL/2021
     Route: 042
     Dates: start: 20210625
  2. COPAXONE [Concomitant]
     Active Substance: GLATIRAMER ACETATE
  3. TECFIDERA [Concomitant]
     Active Substance: DIMETHYL FUMARATE
     Indication: Product used for unknown indication
     Route: 065
     Dates: start: 202006
  4. ZOLOFT [Concomitant]
     Active Substance: SERTRALINE HYDROCHLORIDE
     Indication: Depression
     Route: 048
     Dates: start: 20210426
  5. AVONEX [Concomitant]
     Active Substance: INTERFERON BETA-1A
  6. CAMPATH [Concomitant]
     Active Substance: ALEMTUZUMAB
  7. GILENYA [Concomitant]
     Active Substance: FINGOLIMOD HYDROCHLORIDE

REACTIONS (1)
  - Infusion related reaction [Recovered/Resolved]

NARRATIVE: CASE EVENT DATE: 20210625
